FAERS Safety Report 13092453 (Version 1)
Quarter: 2017Q1

REPORT INFORMATION
  Report Type: Spontaneous
  Country: US (occurrence: US)
  Receive Date: 20170106
  Receipt Date: 20170106
  Transmission Date: 20170428
  Serious: No
  Sender: FDA-Public Use
  Company Number: US-JNJFOC-20161122843

PATIENT
  Age: 84 Year
  Sex: Male
  Weight: 58.06 kg

DRUGS (1)
  1. TYLENOL EXTRA STRENGTH [Suspect]
     Active Substance: ACETAMINOPHEN
     Indication: PAIN
     Dosage: 2 CAPLETS, 1X DAILY WHEN NEEDED
     Route: 048

REACTIONS (1)
  - Intentional product use issue [Unknown]
